FAERS Safety Report 8421660-4 (Version None)
Quarter: 2012Q2

REPORT INFORMATION
  Report Type: 
  Country: None (occurrence: None)
  Receive Date: 20120608
  Receipt Date: 20120531
  Transmission Date: 20120825
  Serious: Yes (Hospitalization)
  Sender: FDA-Public Use
  Company Number: US-ASTELLAS-2012US005186

PATIENT

DRUGS (9)
  1. CALCIUM +D [Concomitant]
     Indication: VITAMIN SUPPLEMENTATION
     Dosage: 600/200 MG, BID
     Route: 048
     Dates: start: 20071201
  2. SODIUM BICARBONATE [Concomitant]
     Indication: GASTRIC PH
     Dosage: 1300 MG, BID
     Route: 048
     Dates: start: 20071201
  3. PROGRAF [Suspect]
     Indication: RENAL TRANSPLANT
     Dosage: 1 MG, BID
     Route: 048
     Dates: start: 20071201
  4. PREDNISONE TAB [Concomitant]
     Indication: RENAL TRANSPLANT
     Dosage: 10 MG, UID/QD
     Route: 048
     Dates: start: 20071201
  5. ATENOLOL [Concomitant]
     Indication: BLOOD PRESSURE
     Dosage: 50 MG, BID
     Route: 048
     Dates: start: 20071201
  6. AMLODIPINE [Concomitant]
     Indication: PRODUCT USED FOR UNKNOWN INDICATION
     Dosage: UNK
     Route: 048
  7. MULTI-VITAMINS [Concomitant]
     Indication: VITAMIN SUPPLEMENTATION
     Dosage: 1 DF, UID/QD
     Route: 048
     Dates: start: 20071201
  8. MAGNESIUM [Concomitant]
     Indication: MINERAL SUPPLEMENTATION
     Dosage: 250 MG, UID/QD
     Route: 048
     Dates: start: 20071201
  9. FOLIC ACID [Concomitant]
     Indication: SUPPLEMENTATION THERAPY
     Dosage: 1 MG, UID/QD
     Route: 048
     Dates: start: 20071201

REACTIONS (2)
  - VOLVULUS [None]
  - MENINGITIS [None]
